FAERS Safety Report 9082134 (Version 8)
Quarter: 2013Q2

REPORT INFORMATION
  Report Type: Spontaneous
  Country: BR (occurrence: BR)
  Receive Date: 20130131
  Receipt Date: 20130410
  Transmission Date: 20140414
  Serious: Yes (Other)
  Sender: FDA-Public Use
  Company Number: BR-AMGEN-BRASP2013006659

PATIENT
  Age: 80 Year
  Sex: Female
  Weight: 80 kg

DRUGS (15)
  1. ENBREL [Suspect]
     Indication: RHEUMATOID ARTHRITIS
     Dosage: 50 MG, WEEKLY
     Route: 058
     Dates: start: 20120829, end: 201210
  2. ENBREL [Suspect]
     Dosage: 25MG TWICE WEEKLY
     Route: 058
     Dates: start: 201209
  3. ENBREL [Suspect]
     Dosage: UNK MG, 2 TIMES/WK
     Dates: start: 201301
  4. OMEPRAZOL                          /00661201/ [Concomitant]
     Dosage: UNK
  5. PANTOPRAZOL [Concomitant]
     Indication: HERNIA
     Dosage: 40 MG, 1X/DAY
  6. MOTILIUM                           /00498201/ [Concomitant]
     Indication: HERNIA
     Dosage: 20 MG, QD, (FASTING) UNK
  7. VIMOVO [Concomitant]
     Indication: PAIN
     Dosage: 20 MG, 1X/DAY
  8. ACLASTA [Concomitant]
     Dosage: UNK
     Dates: start: 201205
  9. RIVOTRIL [Concomitant]
     Indication: DEPRESSION
     Dosage: 2 MG, 2X/DAY
     Route: 048
  10. VITAMIN D /00107901/ [Concomitant]
     Dosage: UNK
  11. CALCIUM [Concomitant]
     Dosage: UNK
  12. ALENDRONIC ACID [Concomitant]
     Dosage: UNK
  13. VITAMIN D [Concomitant]
  14. CYMBALTA [Concomitant]
     Indication: DEPRESSION
     Dosage: 30 MG, 1X/DAY
  15. DICLOFENAC [Concomitant]
     Indication: PAIN
     Dosage: UNK

REACTIONS (10)
  - Osteosclerosis [Unknown]
  - Synovitis [Unknown]
  - Joint effusion [Unknown]
  - Movement disorder [Not Recovered/Not Resolved]
  - Humerus fracture [Not Recovered/Not Resolved]
  - Fall [Unknown]
  - Arthropathy [Unknown]
  - Laboratory test abnormal [Unknown]
  - Femur fracture [Unknown]
  - Osteoporosis [Recovering/Resolving]
